FAERS Safety Report 4517519-5 (Version None)
Quarter: 2004Q4

REPORT INFORMATION
  Report Type: 
  Country: None (occurrence: None)
  Receive Date: 20041027
  Receipt Date: 20040727
  Transmission Date: 20050328
  Serious: No
  Sender: FDA-Public Use
  Company Number: US085104

PATIENT
  Age: 47 Year
  Sex: Male

DRUGS (20)
  1. SENSIPAR [Suspect]
     Indication: HYPERPARATHYROIDISM SECONDARY
     Dosage: 30 MG, 1 IN 1 DAYS, PO
     Route: 048
     Dates: start: 20040627
  2. DOXERCALCEROL [Concomitant]
  3. ALBUTEROL SULFATE [Concomitant]
  4. PROCHLORPERAZINE EDISYLATE [Concomitant]
  5. NEPHRO-CAPS [Concomitant]
  6. CLONAZEPAM [Concomitant]
  7. EPOGEN [Concomitant]
  8. MUPIROCIN [Concomitant]
  9. PHOSLO [Concomitant]
  10. LABETALOL HYDROCHLORIDE [Concomitant]
  11. DOXEPIN HCL [Concomitant]
  12. TRIAZOLAM [Concomitant]
  13. NIFEDIPINE [Concomitant]
  14. OMEPRAZOLE [Concomitant]
  15. ALPRAZOLAM [Concomitant]
  16. CEPHALEXIN MONOHYDRATE [Concomitant]
  17. GABAPENTIN [Concomitant]
  18. DEXAMETHASONE [Concomitant]
  19. HYDROMORPHONE HYDROCHLORIDE [Concomitant]
  20. DOXERCALCEROL [Concomitant]

REACTIONS (1)
  - CALCIPHYLAXIS [None]
